FAERS Safety Report 5670617-5 (Version None)
Quarter: 2008Q1

REPORT INFORMATION
  Report Type: 
  Country: None (occurrence: None)
  Receive Date: 20080314
  Receipt Date: 20080314
  Transmission Date: 20080703
  Serious: No
  Sender: FDA-Public Use
  Company Number: None

PATIENT
  Age: 71 Year
  Sex: Male

DRUGS (2)
  1. GENTAMICIN [Suspect]
     Indication: INFECTION
     Dates: start: 20080301, end: 20080305
  2. VANCOMYCIN [Suspect]

REACTIONS (1)
  - RENAL FAILURE ACUTE [None]
